FAERS Safety Report 10145524 (Version 3)
Quarter: 2014Q2

REPORT INFORMATION
  Report Type: Spontaneous
  Country: US (occurrence: US)
  Receive Date: 20140501
  Receipt Date: 20140624
  Transmission Date: 20141212
  Serious: Yes (Hospitalization, Other)
  Sender: FDA-Public Use
  Company Number: US-JNJFOC-20140418123

PATIENT
  Sex: Female
  Weight: 70.31 kg

DRUGS (53)
  1. XARELTO [Suspect]
     Indication: COAGULOPATHY
     Route: 048
     Dates: start: 20130129, end: 20131210
  2. XARELTO [Suspect]
     Indication: COAGULOPATHY
     Route: 048
  3. XARELTO [Suspect]
     Indication: COAGULOPATHY
     Route: 048
  4. OXYBUTYNIN [Suspect]
     Indication: PRODUCT USED FOR UNKNOWN INDICATION
     Route: 065
     Dates: start: 2013, end: 2013
  5. PROMETHAZINE [Suspect]
     Indication: PRODUCT USED FOR UNKNOWN INDICATION
     Route: 065
     Dates: end: 2013
  6. ZOFRAN [Suspect]
     Indication: PRODUCT USED FOR UNKNOWN INDICATION
     Route: 065
     Dates: start: 2013, end: 2013
  7. REGLAN [Suspect]
     Indication: PRODUCT USED FOR UNKNOWN INDICATION
     Route: 065
     Dates: start: 2013, end: 2013
  8. VALIUM [Suspect]
     Indication: PRODUCT USED FOR UNKNOWN INDICATION
     Route: 065
     Dates: start: 2013, end: 2013
  9. COMPAZINE [Suspect]
     Indication: PRODUCT USED FOR UNKNOWN INDICATION
     Route: 065
     Dates: start: 2013, end: 2013
  10. ATIVAN [Suspect]
     Indication: MUSCLE RELAXANT THERAPY
     Route: 065
     Dates: start: 2013, end: 2013
  11. REMERON [Suspect]
     Indication: PRODUCT USED FOR UNKNOWN INDICATION
     Route: 065
     Dates: start: 2013, end: 2013
  12. SULFAMETHOXAZOLE - TRIMETHOPRIM [Suspect]
     Indication: BRONCHITIS
     Dosage: 800/160
     Route: 065
  13. PROPRANOLOL [Concomitant]
     Indication: MIGRAINE
     Route: 048
     Dates: start: 2014
  14. PROPRANOLOL [Concomitant]
     Indication: BLOOD PRESSURE ABNORMAL
     Route: 048
     Dates: start: 2014
  15. AMITRIPTYLINE [Concomitant]
     Indication: SLEEP DISORDER
     Route: 048
     Dates: start: 2014
  16. AMITRIPTYLINE [Concomitant]
     Indication: SLEEP DISORDER
     Route: 048
  17. VESICARE [Concomitant]
     Indication: URINARY INCONTINENCE
     Route: 048
  18. VESICARE [Concomitant]
     Indication: URINARY INCONTINENCE
     Route: 048
  19. VESICARE [Concomitant]
     Indication: HYPERTONIC BLADDER
     Route: 048
  20. VESICARE [Concomitant]
     Indication: HYPERTONIC BLADDER
     Route: 048
  21. LEVOXYL [Concomitant]
     Indication: THYROID DISORDER
     Route: 048
  22. RANITIDINE [Concomitant]
     Indication: GASTROOESOPHAGEAL REFLUX DISEASE
     Route: 048
  23. MAXALT [Concomitant]
     Indication: MIGRAINE
     Route: 048
  24. CEPHALEXIN [Concomitant]
     Route: 065
  25. VENTOLIN [Concomitant]
     Dosage: 0.083% (2.5MG/3ML) 60X3ML
     Route: 065
  26. TERCONAZOLE [Concomitant]
     Dosage: 20GM
     Route: 065
  27. PREDNISONE [Concomitant]
     Route: 065
  28. GABAPENTIN [Concomitant]
     Route: 065
  29. PRO AIR [Concomitant]
     Route: 065
  30. FLOVENT HFA [Concomitant]
     Route: 048
  31. OMEPRAZOLE [Concomitant]
     Route: 065
  32. CYCLOBENZAPRINE [Concomitant]
     Route: 065
  33. TRAZODONE [Concomitant]
     Route: 065
  34. ESTRACE [Concomitant]
     Route: 067
  35. DIAZEPAM [Concomitant]
     Route: 065
  36. PERMETHRIN [Concomitant]
     Route: 065
  37. PENICILLIN VK [Concomitant]
     Route: 065
  38. QVAR [Concomitant]
     Route: 048
  39. CLINDAMYCIN [Concomitant]
     Route: 065
  40. CLINDAMYCIN [Concomitant]
     Dosage: 60ML
     Route: 065
  41. MIRTAZAPINE [Concomitant]
     Route: 065
  42. MYRBETRIQ [Concomitant]
     Dosage: TB24
     Route: 065
  43. CIPRO [Concomitant]
     Route: 065
  44. INDERAL [Concomitant]
     Route: 065
  45. MACROBID (NITROFURANTOIN) [Concomitant]
     Route: 065
  46. ENOXAPARIN SODIUM [Concomitant]
     Dosage: 80MG/0.8ML
     Route: 065
  47. FLAX SEED OIL [Concomitant]
     Route: 048
  48. VITAMIN D [Concomitant]
     Route: 048
  49. MULTIPLE  VITAMIN [Concomitant]
     Route: 048
  50. ZANTAC [Concomitant]
     Route: 065
  51. FLEXERIL [Concomitant]
     Route: 065
  52. TYLENOL [Concomitant]
     Route: 048
  53. METROCREAM [Concomitant]
     Route: 065

REACTIONS (31)
  - Venous injury [Unknown]
  - Neck pain [Recovered/Resolved]
  - Migraine [Recovered/Resolved]
  - Hypertension [Recovered/Resolved]
  - Chills [Recovered/Resolved]
  - Impaired healing [Unknown]
  - Asthenia [Unknown]
  - Amnesia [Unknown]
  - Feeling abnormal [Unknown]
  - Insomnia [Unknown]
  - Pain in extremity [Unknown]
  - Dyspnoea [Unknown]
  - Drug ineffective for unapproved indication [Unknown]
  - Disturbance in attention [Recovered/Resolved]
  - Blood disorder [Recovered/Resolved]
  - Drug hypersensitivity [Recovered/Resolved]
  - Nonspecific reaction [Recovered/Resolved]
  - Rash [Recovered/Resolved]
  - Confusional state [Recovered/Resolved]
  - Vision blurred [Recovered/Resolved]
  - Anxiety [Recovered/Resolved]
  - Arrhythmia [Recovered/Resolved]
  - Depression [Recovered/Resolved]
  - Epistaxis [Recovered/Resolved]
  - Off label use [Unknown]
  - Scar pain [Unknown]
  - Lip swelling [Unknown]
  - Headache [Unknown]
  - Pruritus [Unknown]
  - Malaise [Unknown]
  - Petechiae [Unknown]
